FAERS Safety Report 16856058 (Version 3)
Quarter: 2019Q4

REPORT INFORMATION
  Report Type: Spontaneous
  Country: US (occurrence: US)
  Receive Date: 20190926
  Receipt Date: 20191203
  Transmission Date: 20200122
  Serious: Yes (Hospitalization, Other)
  Sender: FDA-Public Use
  Company Number: US-PFIZER INC-2019411367

PATIENT
  Age: 67 Year
  Sex: Male
  Weight: 93.89 kg

DRUGS (6)
  1. RETACRIT [Suspect]
     Active Substance: EPOETIN ALFA-EPBX
     Indication: HAEMOGLOBIN DECREASED
  2. RETACRIT [Suspect]
     Active Substance: EPOETIN ALFA-EPBX
     Indication: HAEMATOCRIT DECREASED
  3. RETACRIT [Suspect]
     Active Substance: EPOETIN ALFA-EPBX
     Indication: ANAEMIA
     Dosage: 10000 IU, WEEKLY (FRIDAY)
     Route: 058
     Dates: start: 2019, end: 2019
  4. RETACRIT [Suspect]
     Active Substance: EPOETIN ALFA-EPBX
     Indication: CHRONIC KIDNEY DISEASE
  5. RETACRIT [Suspect]
     Active Substance: EPOETIN ALFA-EPBX
     Indication: RED BLOOD CELL COUNT DECREASED
     Dosage: 20000 IU, WEEKLY (FRIDAY)
     Route: 058
     Dates: start: 2019
  6. VITAMIN D2 [Concomitant]
     Active Substance: ERGOCALCIFEROL
     Indication: RED BLOOD CELL ABNORMALITY
     Dosage: 50000 IU, WEEKLY (FRIDAY)
     Dates: start: 20190913

REACTIONS (5)
  - Skin lesion [Unknown]
  - Drug ineffective [Unknown]
  - Gait inability [Unknown]
  - Osteomyelitis [Recovering/Resolving]
  - Product dose omission [Unknown]

NARRATIVE: CASE EVENT DATE: 20190920
